FAERS Safety Report 13566714 (Version 2)
Quarter: 2017Q2

REPORT INFORMATION
  Report Type: Spontaneous
  Country: US (occurrence: US)
  Receive Date: 20170522
  Receipt Date: 20170529
  Transmission Date: 20170830
  Serious: Yes (Hospitalization, Other)
  Sender: FDA-Public Use
  Company Number: US-WEST-WARD PHARMACEUTICALS CORP.-US-H14001-16-02493

PATIENT
  Age: 72 Year
  Sex: Male
  Weight: 103 kg

DRUGS (10)
  1. VALPROIC ACID. [Interacting]
     Active Substance: VALPROIC ACID
     Route: 065
  2. ACETYLSALICYLIC ACID [Interacting]
     Active Substance: ASPIRIN
     Indication: PRODUCT USED FOR UNKNOWN INDICATION
     Route: 065
     Dates: start: 20150831
  3. VALPROIC ACID. [Interacting]
     Active Substance: VALPROIC ACID
     Route: 065
  4. VALPROIC ACID. [Interacting]
     Active Substance: VALPROIC ACID
     Route: 040
  5. LEVETIRACETAM. [Concomitant]
     Active Substance: LEVETIRACETAM
     Indication: MYOCLONUS
     Route: 065
  6. VALPROIC ACID. [Interacting]
     Active Substance: VALPROIC ACID
     Route: 065
  7. MIDAZOLAM [Concomitant]
     Active Substance: MIDAZOLAM HYDROCHLORIDE
     Indication: MYOCLONUS
     Route: 065
  8. VALPROIC ACID. [Suspect]
     Active Substance: VALPROIC ACID
     Indication: MYOCLONUS
     Route: 065
     Dates: start: 20150901
  9. VALPROIC ACID. [Interacting]
     Active Substance: VALPROIC ACID
     Route: 040
  10. PROPOFOL. [Interacting]
     Active Substance: PROPOFOL
     Indication: MYOCLONUS
     Route: 041
     Dates: start: 20150903

REACTIONS (6)
  - Hepatic function abnormal [Unknown]
  - Anticonvulsant drug level increased [Unknown]
  - Drug interaction [Unknown]
  - Drug level changed [Unknown]
  - Hyperammonaemia [Unknown]
  - Drug prescribing error [Unknown]
